FAERS Safety Report 5250866-0 (Version None)
Quarter: 2007Q1

REPORT INFORMATION
  Report Type: 
  Country: None (occurrence: None)
  Receive Date: 20070228
  Receipt Date: 20060720
  Transmission Date: 20070707
  Serious: No
  Sender: FDA-Public Use
  Company Number: US-GLAXOSMITHKLINE-A0612997A

PATIENT
  Age: 68 Year
  Sex: Male

DRUGS (9)
  1. LAMICTAL [Suspect]
     Indication: DEPRESSION
     Dosage: 100MG PER DAY
     Route: 048
     Dates: start: 20060401
  2. AVAPRO [Concomitant]
  3. ATENOLOL [Concomitant]
  4. DYAZIDE [Concomitant]
  5. LIPITOR [Concomitant]
  6. GLUCOSAMINE [Concomitant]
  7. VITAMINS [Concomitant]
  8. FLAXSEED [Concomitant]
  9. ASPIRIN [Concomitant]

REACTIONS (1)
  - DIZZINESS [None]
